FAERS Safety Report 11606561 (Version 1)
Quarter: 2015Q3

REPORT INFORMATION
  Report Type: Spontaneous
  Country: US (occurrence: US)
  Receive Date: 20150916
  Receipt Date: 20150916
  Transmission Date: 20151125
  Serious: No
  Sender: FDA-Public Use
  Company Number: US-ELI_LILLY_AND_COMPANY-US201402004797

PATIENT
  Sex: Female

DRUGS (12)
  1. TYLENOL [Concomitant]
     Active Substance: ACETAMINOPHEN
  2. ASPIRIN. [Concomitant]
     Active Substance: ASPIRIN
  3. PLAVIX [Concomitant]
     Active Substance: CLOPIDOGREL BISULFATE
  4. METFORMIN [Concomitant]
     Active Substance: METFORMIN HYDROCHLORIDE
     Dosage: 1000 MG, UNK
  5. HUMALOG [Suspect]
     Active Substance: INSULIN LISPRO
     Indication: TYPE 2 DIABETES MELLITUS
     Dosage: UNK UNK, TID
     Route: 065
     Dates: start: 2012
  6. LANTUS [Concomitant]
     Active Substance: INSULIN GLARGINE
     Dosage: 35 U, UNK
  7. LISINOPRIL. [Concomitant]
     Active Substance: LISINOPRIL
  8. GABAPENTIN. [Concomitant]
     Active Substance: GABAPENTIN
  9. NAPROXEN. [Concomitant]
     Active Substance: NAPROXEN
  10. LOVASTATIN. [Concomitant]
     Active Substance: LOVASTATIN
  11. TRIAMTERENE AND HYDROCHLOROTHIAZIDE [Concomitant]
     Active Substance: HYDROCHLOROTHIAZIDE\TRIAMTERENE
  12. METOPROLOL [Concomitant]
     Active Substance: METOPROLOL

REACTIONS (1)
  - Visual impairment [Unknown]
